FAERS Safety Report 9475746 (Version 1)
Quarter: 2013Q3

REPORT INFORMATION
  Report Type: Spontaneous
  Country: IL (occurrence: IL)
  Receive Date: 20130826
  Receipt Date: 20130826
  Transmission Date: 20140515
  Serious: Yes (Other)
  Sender: FDA-Public Use
  Company Number: IL-JNJFOC-20130810567

PATIENT
  Age: 43 Year
  Sex: Female

DRUGS (5)
  1. SIMPONI [Suspect]
     Indication: RHEUMATOID ARTHRITIS
     Route: 058
  2. ARAVA [Suspect]
     Indication: PRODUCT USED FOR UNKNOWN INDICATION
     Route: 065
     Dates: end: 201201
  3. HUMIRA [Concomitant]
     Route: 065
  4. HUMIRA [Concomitant]
     Route: 065
     Dates: start: 201205
  5. METHOTREXATE [Concomitant]
     Route: 065

REACTIONS (2)
  - Hypertriglyceridaemia [Unknown]
  - Hyperlipidaemia [Unknown]
